FAERS Safety Report 24619456 (Version 2)
Quarter: 2024Q4

REPORT INFORMATION
  Report Type: Spontaneous
  Country: US (occurrence: US)
  Receive Date: 20241114
  Receipt Date: 20241120
  Transmission Date: 20250115
  Serious: No
  Sender: PFIZER
  Company Number: US-PFIZER INC-202400299093

PATIENT
  Age: 46 Year
  Sex: Female

DRUGS (2)
  1. EUCRISA [Suspect]
     Active Substance: CRISABOROLE
     Indication: Dermatitis atopic
  2. EUCRISA [Suspect]
     Active Substance: CRISABOROLE
     Indication: Neurodermatitis

REACTIONS (1)
  - Drug ineffective [Unknown]
